FAERS Safety Report 7803590-1 (Version None)
Quarter: 2011Q4

REPORT INFORMATION
  Report Type: 
  Country: None (occurrence: None)
  Receive Date: 20111009
  Receipt Date: 20110926
  Transmission Date: 20120403
  Serious: Yes (Other)
  Sender: FDA-Public Use
  Company Number: US-ELI_LILLY_AND_COMPANY-US201006002406

PATIENT
  Sex: Female

DRUGS (5)
  1. FORTEO [Suspect]
     Dosage: 20 UG, DAILY (1/D)
     Route: 058
  2. FORTEO [Suspect]
     Dosage: 20 UG, QD
     Route: 058
  3. FORTEO [Suspect]
     Dosage: 20 UG, QD
     Route: 058
  4. FORTEO [Suspect]
     Indication: OSTEOPOROSIS
     Dosage: 20 UG, DAILY (1/D)
     Route: 058
     Dates: start: 20100529
  5. FORTEO [Suspect]
     Dosage: 20 UG, DAILY (1/D)
     Route: 058

REACTIONS (15)
  - PHOTOPHOBIA [None]
  - BLOOD ALKALINE PHOSPHATASE INCREASED [None]
  - LIMB INJURY [None]
  - SPEECH DISORDER [None]
  - NASAL CONGESTION [None]
  - ALOPECIA [None]
  - CONTUSION [None]
  - HEADACHE [None]
  - DIZZINESS [None]
  - INJECTION SITE HAEMATOMA [None]
  - LIVER DISORDER [None]
  - SKIN ATROPHY [None]
  - BLOOD TEST ABNORMAL [None]
  - INJECTION SITE PAIN [None]
  - INJECTION SITE ERYTHEMA [None]
